FAERS Safety Report 10265199 (Version 1)
Quarter: 2014Q2

REPORT INFORMATION
  Report Type: Spontaneous
  Country: US (occurrence: None)
  Receive Date: 20140530
  Receipt Date: 20140530
  Transmission Date: 20141212
  Serious: Yes (Other)
  Sender: FDA-Public Use
  Company Number: 2013035568

PATIENT
  Age: 24 Year
  Sex: Male

DRUGS (1)
  1. HIZENTRA (IMMUNOGLOBULIN HUMAN NORMAL) [Suspect]
     Dosage: 1X/WEEK
     Route: 058
     Dates: start: 20130418, end: 20130418

REACTIONS (3)
  - Abdominal pain [None]
  - Nausea [None]
  - Pruritus [None]
